FAERS Safety Report 9608892 (Version 1)
Quarter: 2013Q4

REPORT INFORMATION
  Report Type: Spontaneous
  Country: KR (occurrence: None)
  Receive Date: 20131007
  Receipt Date: 20131007
  Transmission Date: 20140711
  Serious: Yes (Other)
  Sender: FDA-Public Use
  Company Number: INT_00314_2013

PATIENT
  Age: 57 Year
  Sex: Male

DRUGS (3)
  1. TAXOL (PACLITAXEL) (HQ SPECIALTY) [Suspect]
     Indication: LUNG ADENOCARCINOMA
     Dosage: 175MG/M2 FOR 5 MONTHS
  2. BEVACIZUMAB (BEVACIZUMAB) [Suspect]
     Indication: LUNG ADENOCARCINOMA
     Dosage: DF
     Route: 042
  3. CARBOPLATIN (CARBOPLATIN) [Suspect]
     Indication: LUNG ADENOCARCINOMA
     Dosage: DF

REACTIONS (1)
  - Cystoid macular oedema [None]
